FAERS Safety Report 9031683 (Version 4)
Quarter: 2013Q1

REPORT INFORMATION
  Report Type: Spontaneous
  Country: US (occurrence: US)
  Receive Date: 20130124
  Receipt Date: 20130314
  Transmission Date: 20140127
  Serious: Yes (Other)
  Sender: FDA-Public Use
  Company Number: US-PFIZER INC-2013029229

PATIENT
  Age: 81 Year
  Sex: Female
  Weight: 68.03 kg

DRUGS (4)
  1. LYRICA [Suspect]
     Indication: NEURALGIA
     Dosage: 50MG IN MORNING AND 100MG AT BED TIME
     Route: 048
     Dates: start: 2009
  2. LYRICA [Suspect]
     Dosage: UNK
     Route: 048
  3. ALEVE [Concomitant]
     Indication: BACK DISORDER
     Dosage: UNK, 2X/DAY
  4. ALEVE [Concomitant]
     Indication: CHEST PAIN

REACTIONS (10)
  - Arthropathy [Not Recovered/Not Resolved]
  - Peroneal nerve palsy [Not Recovered/Not Resolved]
  - Fall [Unknown]
  - Fibromyalgia [Not Recovered/Not Resolved]
  - Movement disorder [Not Recovered/Not Resolved]
  - Local swelling [Not Recovered/Not Resolved]
  - Pain [Not Recovered/Not Resolved]
  - Chest pain [Unknown]
  - Musculoskeletal pain [Unknown]
  - Back pain [Unknown]
